FAERS Safety Report 14590790 (Version 1)
Quarter: 2018Q1

REPORT INFORMATION
  Report Type: Spontaneous
  Country: US (occurrence: US)
  Receive Date: 20180301
  Receipt Date: 20180301
  Transmission Date: 20180509
  Serious: No
  Sender: FDA-Public Use
  Company Number: None

PATIENT
  Age: 47 Year
  Sex: Male
  Weight: 114.75 kg

DRUGS (4)
  1. FLECTOR [Suspect]
     Active Substance: DICLOFENAC EPOLAMINE
     Indication: JOINT INJURY
     Dosage: OTHER STRENGTH:1 PATCH;QUANTITY:1 PATCH(ES);?
     Route: 062
     Dates: start: 20180227, end: 20180227
  2. TRUVADA [Concomitant]
     Active Substance: EMTRICITABINE\TENOFOVIR DISOPROXIL FUMARATE
  3. TESTOSTERONE. [Concomitant]
     Active Substance: TESTOSTERONE
  4. FIBER SUPPLEMENT [Concomitant]
     Active Substance: DIETARY SUPPLEMENT

REACTIONS (4)
  - Abdominal pain lower [None]
  - Nausea [None]
  - Defaecation urgency [None]
  - Hypophagia [None]

NARRATIVE: CASE EVENT DATE: 20180227
